FAERS Safety Report 9992393 (Version 1)
Quarter: 2014Q1

REPORT INFORMATION
  Report Type: Spontaneous
  Country: US (occurrence: US)
  Receive Date: 20140310
  Receipt Date: 20140310
  Transmission Date: 20141002
  Serious: No
  Sender: FDA-Public Use
  Company Number: US-PFIZER INC-2014068287

PATIENT
  Age: 79 Year
  Sex: Female
  Weight: 50.34 kg

DRUGS (1)
  1. LYRICA [Suspect]
     Dosage: 50 MG, UNK
     Dates: end: 20140305

REACTIONS (5)
  - Vision blurred [Recovered/Resolved]
  - Nightmare [Recovered/Resolved]
  - Nausea [Recovered/Resolved]
  - Fatigue [Recovered/Resolved]
  - Insomnia [Recovered/Resolved]
